FAERS Safety Report 6110803-3 (Version None)
Quarter: 2009Q1

REPORT INFORMATION
  Report Type: 
  Country: None (occurrence: None)
  Receive Date: 20090311
  Receipt Date: 20090306
  Transmission Date: 20090719
  Serious: Yes (Hospitalization)
  Sender: FDA-Public Use
  Company Number: PT-JNJFOC-20090301705

PATIENT
  Age: 93 Year
  Sex: Female

DRUGS (8)
  1. TAVANIC [Suspect]
     Indication: RESPIRATORY TRACT INFECTION
     Dosage: 250 MG SOLUTION FOR INFUSION
     Route: 042
  2. DARBEPOETIN ALFA [Concomitant]
     Indication: ANAEMIA PROPHYLAXIS
     Route: 058
  3. IRON HYDROXIDE [Concomitant]
     Indication: ANAEMIA
     Route: 042
  4. SALBUTAMOL SULFATE [Concomitant]
     Indication: BRONCHOSPASM
     Route: 055
  5. BROMAZEPAM [Concomitant]
     Route: 048
  6. IPRATROPIUM BROMIDE [Concomitant]
     Indication: BRONCHOSPASM
     Route: 055
  7. NICERGOLINE [Concomitant]
     Route: 048
  8. FLAVONOIDS [Concomitant]
     Route: 048

REACTIONS (3)
  - LEUKOPENIA [None]
  - LYMPHOPENIA [None]
  - NEUTROPENIA [None]
